FAERS Safety Report 9077214 (Version 1)
Quarter: 2013Q1

REPORT INFORMATION
  Report Type: Report from Study
  Country: US (occurrence: US)
  Receive Date: 20130129
  Receipt Date: 20130129
  Transmission Date: 20140127
  Serious: No
  Sender: FDA-Public Use
  Company Number: US-ABBOTT-12P-163-0945830-00

PATIENT
  Age: 67 Year
  Sex: Female

DRUGS (9)
  1. HUMIRA 40 MG/0.8 ML PEN [Suspect]
     Indication: PSORIASIS
     Dates: start: 20120507
  2. SINGULAIR [Concomitant]
     Indication: ASTHMA
     Dosage: 10MG/DAY
  3. ADVAIR [Concomitant]
     Indication: ASTHMA
     Dosage: ONE PUFF 230MCG EVERY DAY
  4. SPIRIVA [Concomitant]
     Indication: ASTHMA
     Dosage: ONE PUFF EVERY DAY
  5. VENTOLIN RESCUE INHALER [Concomitant]
     Indication: ASTHMA
     Dosage: TAKES BEFORE EXERCISING
  6. NASONEX [Concomitant]
     Indication: ASTHMA
     Dosage: 2 SQUIRTS EACH NOSTRIL
  7. PATANASE SPRAY [Concomitant]
     Indication: ASTHMA
     Dosage: 655MCG ONCE A DAY
  8. WELLBUTRIN [Concomitant]
     Indication: PRODUCT USED FOR UNKNOWN INDICATION
     Dosage: 300MG EVERYDAY
  9. NEXIUM [Concomitant]
     Indication: PRODUCT USED FOR UNKNOWN INDICATION
     Dosage: 40MG EVERYDAY

REACTIONS (2)
  - Generalised erythema [Not Recovered/Not Resolved]
  - Pruritus [Not Recovered/Not Resolved]
